FAERS Safety Report 22243019 (Version 1)
Quarter: 2023Q2

REPORT INFORMATION
  Report Type: Spontaneous
  Country: DK (occurrence: DK)
  Receive Date: 20230424
  Receipt Date: 20230424
  Transmission Date: 20230722
  Serious: Yes (Other)
  Sender: FDA-Public Use
  Company Number: None

PATIENT
  Age: 73 Year
  Sex: Female

DRUGS (1)
  1. MECHLORETHAMINE HYDROCHLORIDE [Suspect]
     Active Substance: MECHLORETHAMINE HYDROCHLORIDE
     Indication: Cutaneous T-cell lymphoma recurrent
     Dosage: 160 ?G/G, QD
     Route: 003
     Dates: start: 20230221, end: 20230221

REACTIONS (6)
  - Angioedema [Recovered/Resolved]
  - Swelling face [Recovered/Resolved]
  - Pruritus [Recovered/Resolved]
  - Heart rate increased [Recovered/Resolved]
  - Dyspnoea [Recovered/Resolved]
  - Swollen tongue [Recovered/Resolved]

NARRATIVE: CASE EVENT DATE: 20230221
